FAERS Safety Report 5469128-1 (Version None)
Quarter: 2007Q3

REPORT INFORMATION
  Report Type: 
  Country: None (occurrence: None)
  Receive Date: 20070927
  Receipt Date: 20070921
  Transmission Date: 20080115
  Serious: Yes (Death, Other)
  Sender: FDA-Public Use
  Company Number: PHHO2007BR15688

PATIENT
  Age: 89 Year
  Sex: Male

DRUGS (6)
  1. EXELON [Suspect]
     Indication: DEMENTIA ALZHEIMER'S TYPE
     Dosage: 2 TABLETS DAILY
     Route: 048
  2. STALEVO 100 [Suspect]
     Indication: DEMENTIA ALZHEIMER'S TYPE
     Dosage: 3 TABLETS DAILY
     Route: 048
  3. ENALAPRIL MALEATE [Concomitant]
     Indication: HYPERTENSION
  4. HYDROCHLOROTHIAZIDE [Concomitant]
     Indication: HYPERTENSION
  5. AAS [Concomitant]
  6. ISOSORBIDE DINITRATE [Concomitant]

REACTIONS (7)
  - CHOKING [None]
  - DEATH [None]
  - LOSS OF CONSCIOUSNESS [None]
  - ORAL INTAKE REDUCED [None]
  - SYNCOPE [None]
  - VISUAL DISTURBANCE [None]
  - WEIGHT DECREASED [None]
